FAERS Safety Report 10155982 (Version 5)
Quarter: 2015Q1

REPORT INFORMATION
  Report Type: Report from Study
  Country: FR (occurrence: FR)
  Receive Date: 20140506
  Receipt Date: 20150310
  Transmission Date: 20150720
  Serious: Yes (Hospitalization)
  Sender: FDA-Public Use
  Company Number: FR-ASTRAZENECA-2014SE04332

PATIENT
  Age: 377 Month
  Sex: Male
  Weight: 82 kg

DRUGS (6)
  1. XEROQUEL [Suspect]
     Active Substance: QUETIAPINE FUMARATE
     Indication: BIPOLAR DISORDER
     Route: 048
     Dates: start: 20130306, end: 20130306
  2. RISPAERDAL [Concomitant]
     Route: 048
     Dates: start: 20130425
  3. LOXAPAC [Concomitant]
     Active Substance: LOXAPINE SUCCINATE
     Route: 048
     Dates: start: 20130306
  4. PROZAC [Concomitant]
     Active Substance: FLUOXETINE HYDROCHLORIDE
     Route: 048
     Dates: start: 20120706, end: 20130306
  5. RISPAERDAL [Concomitant]
     Route: 048
     Dates: start: 20120703, end: 20130306
  6. VALIUM [Concomitant]
     Active Substance: DIAZEPAM
     Route: 048
     Dates: start: 20130306

REACTIONS (3)
  - Disease recurrence [Recovered/Resolved]
  - Treatment noncompliance [Recovered/Resolved]
  - Psychiatric decompensation [Recovered/Resolved]

NARRATIVE: CASE EVENT DATE: 20130306
